FAERS Safety Report 25457014 (Version 1)
Quarter: 2025Q2

REPORT INFORMATION
  Report Type: Spontaneous
  Country: US (occurrence: US)
  Receive Date: 20250619
  Receipt Date: 20250619
  Transmission Date: 20250716
  Serious: No
  Sender: SANOFI AVENTIS
  Company Number: US-SA-2025SA173493

PATIENT
  Sex: Male
  Weight: 79.37 kg

DRUGS (7)
  1. DUPIXENT [Suspect]
     Active Substance: DUPILUMAB
     Indication: Dermatitis atopic
     Dosage: 300 MG, QOW
     Route: 058
     Dates: start: 202209
  2. DOXYCYCLINE HYCLATE [Concomitant]
     Active Substance: DOXYCYCLINE HYCLATE
  3. PREDNISONE [Concomitant]
     Active Substance: PREDNISONE
  4. FUROSEMIDE [Concomitant]
     Active Substance: FUROSEMIDE
  5. TRIAMCINOLONE ACETONIDE [Concomitant]
     Active Substance: TRIAMCINOLONE ACETONIDE
  6. CERAVE HEALING [Concomitant]
     Active Substance: PETROLATUM
  7. Petroleum jelly [Concomitant]

REACTIONS (5)
  - Skin exfoliation [Unknown]
  - Skin irritation [Unknown]
  - Photosensitivity reaction [Unknown]
  - Periorbital irritation [Unknown]
  - Musculoskeletal stiffness [Unknown]
